FAERS Safety Report 15657998 (Version 1)
Quarter: 2018Q4

REPORT INFORMATION
  Report Type: Spontaneous
  Country: US (occurrence: US)
  Receive Date: 20181126
  Receipt Date: 20181126
  Transmission Date: 20190205
  Serious: Yes (Disabling)
  Sender: FDA-Public Use
  Company Number: None

PATIENT
  Age: 55 Year
  Sex: Male
  Weight: 108 kg

DRUGS (15)
  1. SPINAL CORD STIMULATOR IMPLANT [Concomitant]
  2. LEVOTHYROXINE. [Concomitant]
     Active Substance: LEVOTHYROXINE
  3. DIVALPROEX SODIUM ER [Suspect]
     Active Substance: DIVALPROEX SODIUM
     Indication: MIGRAINE
     Dosage: ?          QUANTITY:1 TABLET(S);?
     Route: 048
     Dates: start: 20180914, end: 20181025
  4. MIRTAZAPINE. [Concomitant]
     Active Substance: MIRTAZAPINE
  5. MELATONIN [Concomitant]
     Active Substance: MELATONIN
  6. GABAPENTIN. [Concomitant]
     Active Substance: GABAPENTIN
  7. MENS 50+ MULTIVITAMIN [Concomitant]
  8. ALLOPURINOL. [Concomitant]
     Active Substance: ALLOPURINOL
  9. MELOXICAM. [Concomitant]
     Active Substance: MELOXICAM
  10. OMEPRAZOLE/BICARB [Concomitant]
  11. SUPER B COMPLEX W/C [Concomitant]
  12. VITAMIN D3 [Concomitant]
     Active Substance: CHOLECALCIFEROL
  13. CLONAZEPAM. [Concomitant]
     Active Substance: CLONAZEPAM
  14. TESTOSTERONE. [Concomitant]
     Active Substance: TESTOSTERONE
  15. ACET/CODEINE [Concomitant]

REACTIONS (1)
  - Micturition urgency [None]

NARRATIVE: CASE EVENT DATE: 20181002
